FAERS Safety Report 7135499-3 (Version None)
Quarter: 2010Q4

REPORT INFORMATION
  Report Type: 
  Country: None (occurrence: None)
  Receive Date: 20101203
  Receipt Date: 20101125
  Transmission Date: 20110411
  Serious: Yes (Other)
  Sender: FDA-Public Use
  Company Number: CL-ABBOTT-10P-034-0687859-00

PATIENT
  Sex: Male
  Weight: 73 kg

DRUGS (10)
  1. SEVORANE [Suspect]
     Indication: ANAESTHESIA
     Route: 055
     Dates: start: 20101124, end: 20101124
  2. CEFAZOLIN [Concomitant]
     Indication: ANAESTHESIA
     Dosage: ONE DOSE, ROUTE: EV
     Dates: start: 20101124, end: 20101124
  3. KETOPROFEN [Concomitant]
     Indication: ANAESTHESIA
     Dosage: ONE DOSE, ROUTE: EV
     Dates: start: 20101124, end: 20101124
  4. DEXAMETHASONE [Concomitant]
     Indication: ANAESTHESIA
     Dosage: ONE DOSE, ROUTE: EV
     Dates: start: 20101124, end: 20101124
  5. MIDAZOLAM HCL [Concomitant]
     Indication: ANAESTHESIA
     Dosage: ONE DOSE, ROUTE: EV
     Dates: start: 20101124, end: 20101124
  6. FENTANYL CITRATE [Concomitant]
     Indication: ANAESTHESIA
     Dosage: ONE DOSE, ROUTE: EV
     Dates: start: 20101124, end: 20101124
  7. PROPOFOL [Concomitant]
     Indication: ANAESTHESIA
     Dosage: ONE DOSE, ROUTE: EV
     Dates: start: 20101124, end: 20101124
  8. ROCURONIO [Concomitant]
     Indication: ANAESTHESIA
     Dosage: ONE DOSE, ROUTE: EV
     Route: 042
     Dates: start: 20101124, end: 20101124
  9. LEVOBUPIVACAINE [Concomitant]
     Indication: ANAESTHESIA
     Dosage: ONE DOSE, ROUTE: EV
     Dates: start: 20101124, end: 20101124
  10. LIDOCAINE [Concomitant]
     Indication: ANAESTHESIA
     Dosage: ONE DOSE, ROUTE: EV
     Dates: start: 20101124, end: 20101124

REACTIONS (3)
  - ANAESTHETIC COMPLICATION [None]
  - DYSKINESIA [None]
  - HYPERTENSION [None]
